FAERS Safety Report 24035419 (Version 1)
Quarter: 2024Q3

REPORT INFORMATION
  Report Type: Spontaneous
  Country: CN (occurrence: CN)
  Receive Date: 20240701
  Receipt Date: 20240701
  Transmission Date: 20241016
  Serious: Yes (Other)
  Sender: ROCHE
  Company Number: CN-BoehringerIngelheim-2024-BI-034716

PATIENT
  Age: 68 Year
  Sex: Male
  Weight: 58.0 kg

DRUGS (1)
  1. ALTEPLASE [Suspect]
     Active Substance: ALTEPLASE
     Indication: Thrombolysis
     Route: 042
     Dates: start: 20240511, end: 20240511

REACTIONS (1)
  - Blood fibrinogen decreased [Recovering/Resolving]

NARRATIVE: CASE EVENT DATE: 20240512
